FAERS Safety Report 7581099-0 (Version None)
Quarter: 2011Q2

REPORT INFORMATION
  Report Type: 
  Country: None (occurrence: None)
  Receive Date: 20110610
  Receipt Date: 20110601
  Transmission Date: 20111010
  Serious: Yes (Other)
  Sender: FDA-Public Use
  Company Number: 2011028717

PATIENT
  Age: 20 Year
  Sex: Female
  Weight: 70.3075 kg

DRUGS (46)
  1. HIZENTRA [Suspect]
  2. HIZENTRA [Suspect]
  3. ACIDOPHILUS (LACTOBACILLUS ACIDOPHILUS) [Concomitant]
  4. ULTRAM [Concomitant]
  5. HIZENTRA [Suspect]
  6. HIZENTRA [Suspect]
  7. HIZENTRA [Suspect]
  8. CEFTIN [Concomitant]
  9. ATROVENT [Concomitant]
  10. CALCIUM (CALCIUM) [Concomitant]
  11. XOPENEX [Concomitant]
  12. LEVOTHYROXINE SODIUM [Concomitant]
  13. ACETAMINOPHEN [Concomitant]
  14. HIZENTRA (IMMUNOGLOBULIN HUMAN NORMAL) [Suspect]
     Indication: IMMUNODEFICIENCY COMMON VARIABLE
     Dosage: 10 G 2X/WEEK, 50 ML VIA 3 SITES OVER 1 HOUR 45 MINUTES, SUBCUTANEOUS, 2GM 10 ML VIAL , SUBCUTANEOUS
     Route: 058
     Dates: start: 20100903
  15. HIZENTRA (IMMUNOGLOBULIN HUMAN NORMAL) [Suspect]
     Indication: RHINITIS ALLERGIC
     Dosage: 10 G 2X/WEEK, 50 ML VIA 3 SITES OVER 1 HOUR 45 MINUTES, SUBCUTANEOUS, 2GM 10 ML VIAL , SUBCUTANEOUS
     Route: 058
     Dates: start: 20100903
  16. HIZENTRA (IMMUNOGLOBULIN HUMAN NORMAL) [Suspect]
     Indication: HYPOTHYROIDISM
     Dosage: 10 G 2X/WEEK, 50 ML VIA 3 SITES OVER 1 HOUR 45 MINUTES, SUBCUTANEOUS, 2GM 10 ML VIAL , SUBCUTANEOUS
     Route: 058
     Dates: start: 20100903
  17. HIZENTRA (IMMUNOGLOBULIN HUMAN NORMAL) [Suspect]
     Indication: IMMUNODEFICIENCY
     Dosage: 10 G 2X/WEEK, 50 ML VIA 3 SITES OVER 1 HOUR 45 MINUTES, SUBCUTANEOUS, 2GM 10 ML VIAL , SUBCUTANEOUS
     Route: 058
     Dates: start: 20100903
  18. HIZENTRA [Suspect]
  19. NEO-MED NASAL (NEO-MEDROL) [Concomitant]
  20. FISH OIL (FISH OIL) [Concomitant]
  21. MIGRANAL (DIHYDROERGOTAMINE MESILATE) [Concomitant]
  22. MULTIVITAMIN (ACCOMID MULTIVITAMIN) [Concomitant]
  23. HIZENTRA (IMMUNOGLOBULIN HUMAN NORMAL) [Suspect]
  24. HIZENTRA [Suspect]
  25. HIZENTRA [Suspect]
  26. HIZENTRA [Suspect]
  27. CLINDAMYCIN [Concomitant]
  28. PULMICORT [Concomitant]
  29. HIZENTRA (IMMUNOGLOBULIN HUMAN NORMAL) [Suspect]
  30. HIZENTRA [Suspect]
  31. HIZENTRA [Suspect]
  32. CYMBALTA [Concomitant]
  33. OMEPRAZOLE [Concomitant]
  34. RITALIN [Concomitant]
  35. LACTAID (TILACTASE) [Concomitant]
  36. SINGULAIR [Concomitant]
  37. ACETAMINOPHEN [Concomitant]
  38. SPIRIVA [Concomitant]
  39. ESTER C (CALCIUM ASCORBATE) [Concomitant]
  40. HIZENTRA [Suspect]
  41. HIZENTRA [Suspect]
  42. NEURONTIN [Concomitant]
  43. CRANBERRY (VACCINIUM MACROCARPON) [Concomitant]
  44. VITAMIN D [Concomitant]
  45. LUNESTA [Concomitant]
  46. LYBREL (LEVONORGESTREL) [Concomitant]

REACTIONS (9)
  - WHEEZING [None]
  - FATIGUE [None]
  - SINUSITIS [None]
  - BODY TEMPERATURE INCREASED [None]
  - HEADACHE [None]
  - PARANASAL SINUS HYPERSECRETION [None]
  - FACIAL PAIN [None]
  - DYSPNOEA [None]
  - PYREXIA [None]
